FAERS Safety Report 14756360 (Version 2)
Quarter: 2018Q2

REPORT INFORMATION
  Report Type: Spontaneous
  Country: US (occurrence: US)
  Receive Date: 20180413
  Receipt Date: 20180430
  Transmission Date: 20180711
  Serious: Yes (Hospitalization, Other)
  Sender: FDA-Public Use
  Company Number: US-GLAXOSMITHKLINE-US2018061622

PATIENT
  Age: 60 Year
  Sex: Male

DRUGS (13)
  1. VENTOLIN HFA [Suspect]
     Active Substance: ALBUTEROL SULFATE
     Dosage: UNK
  2. DOXYCYCLINE HYCLATE. [Concomitant]
     Active Substance: DOXYCYCLINE HYCLATE
  3. ADVAIR DISKUS [Suspect]
     Active Substance: FLUTICASONE PROPIONATE\SALMETEROL XINAFOATE
     Indication: ASTHMA
     Dosage: 1 PUFF(S), BID
     Dates: start: 2010
  4. ZITHROMAX [Concomitant]
     Active Substance: AZITHROMYCIN DIHYDRATE
  5. ADVAIR DISKUS [Suspect]
     Active Substance: FLUTICASONE PROPIONATE\SALMETEROL XINAFOATE
     Indication: CHRONIC OBSTRUCTIVE PULMONARY DISEASE
  6. PREDNISONE. [Concomitant]
     Active Substance: PREDNISONE
  7. FISH OIL - OMEGA 3 [Concomitant]
     Active Substance: FISH OIL\OMEGA-3 FATTY ACIDS
  8. SIMVASTATIN. [Concomitant]
     Active Substance: SIMVASTATIN
  9. ASPIRIN. [Concomitant]
     Active Substance: ASPIRIN
  10. LISINOPRIL. [Concomitant]
     Active Substance: LISINOPRIL
  11. VENTOLIN HFA [Suspect]
     Active Substance: ALBUTEROL SULFATE
     Indication: DYSPNOEA
     Dosage: 1 PUFF(S), PRN
     Dates: start: 1988
  12. FELODIPINE. [Concomitant]
     Active Substance: FELODIPINE
  13. FENOFIBRATE. [Concomitant]
     Active Substance: FENOFIBRATE

REACTIONS (9)
  - Total lung capacity decreased [Unknown]
  - Lower respiratory tract infection [Recovered/Resolved]
  - Lung disorder [Unknown]
  - Nasopharyngitis [Recovering/Resolving]
  - Ill-defined disorder [Unknown]
  - Dyspnoea [Recovering/Resolving]
  - Pneumonia viral [Recovering/Resolving]
  - Rotator cuff syndrome [Recovered/Resolved]
  - Oropharyngeal pain [Recovering/Resolving]

NARRATIVE: CASE EVENT DATE: 201512
